FAERS Safety Report 9522080 (Version 1)
Quarter: 2013Q3

REPORT INFORMATION
  Report Type: Spontaneous
  Country: ES (occurrence: None)
  Receive Date: 20130911
  Receipt Date: 20130911
  Transmission Date: 20140515
  Serious: Yes (Other)
  Sender: FDA-Public Use
  Company Number: FK201304102

PATIENT
  Age: 33 Year
  Sex: Female

DRUGS (4)
  1. DOXORUBICIN (MANUFACTURER UNKNOWN) (DOXORUBICIN HYDROCHLORIDE) (DOXORUBICIN HYDROCHLORIDE) [Suspect]
     Indication: HODGKIN^S DISEASE
  2. BLEOMYCIN [Suspect]
     Indication: HODGKIN^S DISEASE
  3. DACARBAZINE [Suspect]
     Indication: HODGKIN^S DISEASE
  4. VINBLASTINE [Suspect]
     Indication: HODGKIN^S DISEASE

REACTIONS (1)
  - Sarcoidosis [None]
